FAERS Safety Report 4665727-5 (Version None)
Quarter: 2005Q2

REPORT INFORMATION
  Report Type: 
  Country: None (occurrence: None)
  Receive Date: 20050519
  Receipt Date: 20050309
  Transmission Date: 20051028
  Serious: Yes (Death)
  Sender: FDA-Public Use
  Company Number: GB-BOEHRINGER INGELHEIM PHARMACEUTICALS, INC.-2005-UK-00405UK

PATIENT
  Sex: Male

DRUGS (14)
  1. SPIRIVA [Suspect]
     Route: 055
  2. SUMATRIPTAN SUCCINATE [Suspect]
  3. SALBUTAMOL [Suspect]
  4. AMITRIPTYLINE HYDROCHLORIDE [Suspect]
     Dosage: 25 MG X 4 AT NIGHT
  5. VERAPAMIL HYDROCHLORIDE [Suspect]
     Dosage: 120 MG THREE TIMES DAILY
  6. SUMATRIPTAN SUCCINATE [Suspect]
     Dosage: 20 MG/0.1 ML
  7. PREDNISOLONE [Suspect]
     Dosage: 6 ONCE DAILY
     Route: 048
  8. CLARITHROMYCIN [Suspect]
     Dosage: 250 MG TWICE DAILY
  9. SERETIDE 250 EVOHALER [Suspect]
     Dosage: TWICE DAILY
  10. MENTHOL + EUCALYPTUS INHALATION [Suspect]
     Dosage: 5ML/1 PINT OF HOT WATER
     Route: 055
  11. PARACETAMOL [Suspect]
     Dosage: 2 FOUR TIMES DAILY
  12. OXYGEN [Suspect]
     Dosage: 1360 LITRES
  13. VENTIMASK OXYGEN MASK [Suspect]
     Dosage: 28%
  14. OXYGEN CYLINDER [Suspect]
     Dosage: 460 LITRES

REACTIONS (2)
  - CHRONIC OBSTRUCTIVE PULMONARY DISEASE [None]
  - LOWER RESPIRATORY TRACT INFECTION [None]
